FAERS Safety Report 18133819 (Version 1)
Quarter: 2020Q3

REPORT INFORMATION
  Report Type: Spontaneous
  Country: DE (occurrence: DE)
  Receive Date: 20200811
  Receipt Date: 20200811
  Transmission Date: 20201103
  Serious: Yes (Hospitalization)
  Sender: FDA-Public Use
  Company Number: DE-ACCORD-194985

PATIENT
  Age: 62 Year
  Sex: Female
  Weight: 74 kg

DRUGS (14)
  1. HYDROCHLOROTHIAZIDE. [Concomitant]
     Active Substance: HYDROCHLOROTHIAZIDE
     Dosage: 25 MG, 1?0?0?0
  2. JANUMET [Concomitant]
     Active Substance: METFORMIN HYDROCHLORIDE\SITAGLIPTIN PHOSPHATE
     Dosage: 850 50 MG, 1?0?1?0
  3. KALINOR?RETARD P [Concomitant]
     Dosage: 600 MG, 1?1?1?0
  4. IBUPROFEN. [Concomitant]
     Active Substance: IBUPROFEN
     Dosage: 600 MG, 4X
  5. BISOPROLOL [Concomitant]
     Active Substance: BISOPROLOL
     Dosage: 10 MG, 1?0?0?0
  6. ATEZOLIZUMAB. [Suspect]
     Active Substance: ATEZOLIZUMAB
     Indication: PRODUCT USED FOR UNKNOWN INDICATION
     Dosage: LATEST 17022020
  7. PREGABALIN. [Concomitant]
     Active Substance: PREGABALIN
     Dosage: 25 MG, 2X
  8. PACLITAXEL/PACLITAXEL LIPOSOME [Suspect]
     Active Substance: PACLITAXEL
     Indication: PRODUCT USED FOR UNKNOWN INDICATION
     Dosage: LATEST 17022020
  9. PREDNISOLONE. [Concomitant]
     Active Substance: PREDNISOLONE
     Dosage: 55 MG, FOR 3 DAYS
  10. DAPAGLIFLOZIN. [Concomitant]
     Active Substance: DAPAGLIFLOZIN
     Dosage: 10 MG, 0?1?0?0
  11. HYDROMORPHONE/HYDROMORPHONE HYDROCHLORIDE [Concomitant]
     Active Substance: HYDROMORPHONE
     Dosage: 4 MG, 1?0?1?0
  12. MCP [Concomitant]
     Active Substance: METOCLOPRAMIDE HYDROCHLORIDE
     Dosage: 10 MG, 3X
  13. GRANISETRON [Concomitant]
     Active Substance: GRANISETRON
     Dosage: 2 MG, 1X
  14. VOMEX A [Concomitant]
     Active Substance: DIMENHYDRINATE
     Dosage: 0?1?0?0

REACTIONS (5)
  - Flatulence [Unknown]
  - Vomiting [Unknown]
  - General physical health deterioration [Unknown]
  - Nausea [Unknown]
  - Abdominal distension [Unknown]
